FAERS Safety Report 10533735 (Version 1)
Quarter: 2014Q4

REPORT INFORMATION
  Report Type: Spontaneous
  Country: US (occurrence: US)
  Receive Date: 20141022
  Receipt Date: 20141022
  Transmission Date: 20150529
  Serious: Yes (Congenital Anomaly, Other)
  Sender: FDA-Public Use
  Company Number: US-ABBVIE-14P-163-1298227-00

PATIENT
  Sex: Female

DRUGS (1)
  1. EPILIM [Suspect]
     Active Substance: VALPROATE SODIUM
     Indication: MATERNAL EXPOSURE TIMING UNSPECIFIED
     Route: 064

REACTIONS (14)
  - Walking disability [Unknown]
  - Foetal exposure during pregnancy [Unknown]
  - Slow speech [Unknown]
  - Social problem [Unknown]
  - Hearing impaired [Unknown]
  - Coordination abnormal [Unknown]
  - Tooth loss [Unknown]
  - Hypotonia [Unknown]
  - Learning disorder [Unknown]
  - Premature baby [Unknown]
  - Foetal anticonvulsant syndrome [Unknown]
  - Visual acuity reduced [Unknown]
  - Developmental delay [Unknown]
  - Physical disability [Unknown]
